FAERS Safety Report 6140165-7 (Version None)
Quarter: 2009Q1

REPORT INFORMATION
  Report Type: 
  Country: None (occurrence: None)
  Receive Date: 20090324
  Receipt Date: 20090323
  Transmission Date: 20090719
  Serious: Yes (Death, Life-Threatening, Hospitalization)
  Sender: FDA-Public Use
  Company Number: 2008SP001606

PATIENT
  Age: 46 Year
  Sex: Male
  Weight: 93.7 kg

DRUGS (9)
  1. TEMOZOLOMIDE [Suspect]
     Indication: COLORECTAL CANCER
     Dosage: 250 MG;QD;PO ; 250 MG;QD;PO
     Route: 048
     Dates: start: 20071221, end: 20071228
  2. TEMOZOLOMIDE [Suspect]
     Indication: COLORECTAL CANCER
     Dosage: 250 MG;QD;PO ; 250 MG;QD;PO
     Route: 048
     Dates: start: 20080104, end: 20080111
  3. GABAPENTIN [Concomitant]
  4. OLAZAPINE [Concomitant]
  5. VENLAFAXINE HCL [Concomitant]
  6. TRAMADOL [Concomitant]
  7. CELECOXIB [Concomitant]
  8. OMEPRAZOLE [Concomitant]
  9. METHADONE HCL [Concomitant]

REACTIONS (5)
  - ASTHENIA [None]
  - DIZZINESS [None]
  - RENAL FAILURE ACUTE [None]
  - URINARY RETENTION [None]
  - VOMITING [None]
